FAERS Safety Report 25171766 (Version 1)
Quarter: 2025Q2

REPORT INFORMATION
  Report Type: Spontaneous
  Country: US (occurrence: US)
  Receive Date: 20250408
  Receipt Date: 20250408
  Transmission Date: 20250717
  Serious: Yes (Hospitalization, Other)
  Sender: COOPERSURGICAL
  Company Number: US-COOPERSURGICAL, INC.-2025CPS002573

PATIENT
  Age: 34 Year
  Sex: Female
  Weight: 81.633 kg

DRUGS (2)
  1. PARAGARD T 380A [Suspect]
     Active Substance: COPPER
     Route: 015
     Dates: start: 20070515
  2. METHYLPHENIDATE [Concomitant]
     Active Substance: METHYLPHENIDATE
     Dates: start: 2008

REACTIONS (11)
  - Post procedural sepsis [Not Recovered/Not Resolved]
  - Coma [Unknown]
  - Cervix carcinoma [Unknown]
  - Uterine leiomyoma [Recovered/Resolved]
  - Fallopian tube disorder [Recovered/Resolved]
  - Hysterectomy [Recovered/Resolved]
  - Salpingectomy [Recovered/Resolved]
  - Neuropathy peripheral [Not Recovered/Not Resolved]
  - Device breakage [Recovered/Resolved]
  - Foreign body in reproductive tract [Recovered/Resolved]
  - Complication of device removal [Recovered/Resolved]

NARRATIVE: CASE EVENT DATE: 20130901
